FAERS Safety Report 7112395-9 (Version None)
Quarter: 2010Q4

REPORT INFORMATION
  Report Type: 
  Country: None (occurrence: None)
  Receive Date: 20101119
  Receipt Date: 20101013
  Transmission Date: 20110411
  Serious: No
  Sender: FDA-Public Use
  Company Number: A0886398A

PATIENT
  Age: 71 Year
  Sex: Male

DRUGS (3)
  1. AVODART [Suspect]
     Indication: BENIGN PROSTATIC HYPERPLASIA
     Dosage: 1CAP PER DAY
     Route: 048
     Dates: start: 20100905
  2. NORVASC [Concomitant]
  3. MULTI-VITAMINS [Concomitant]

REACTIONS (2)
  - URINARY INCONTINENCE [None]
  - URINE FLOW DECREASED [None]
